FAERS Safety Report 4878360-7 (Version None)
Quarter: 2005Q4

REPORT INFORMATION
  Report Type: 
  Country: None (occurrence: None)
  Receive Date: 20051206
  Receipt Date: 20050831
  Transmission Date: 20060501
  Serious: No
  Sender: FDA-Public Use
  Company Number: USA0509107015

PATIENT
  Age: 65 Year
  Sex: Male

DRUGS (1)
  1. CYMBALTA [Suspect]
     Indication: NEUROPATHY
     Dosage: 60 MG DAY
     Dates: start: 20050201

REACTIONS (3)
  - ANGER [None]
  - ANXIETY [None]
  - DRUG INEFFECTIVE [None]
